FAERS Safety Report 15056553 (Version 1)
Quarter: 2018Q2

REPORT INFORMATION
  Report Type: Spontaneous
  Country: BR (occurrence: BR)
  Receive Date: 20180623
  Receipt Date: 20180623
  Transmission Date: 20180711
  Serious: Yes (Hospitalization)
  Sender: FDA-Public Use
  Company Number: BR-ROCHE-2120727

PATIENT
  Age: 73 Year
  Sex: Female

DRUGS (5)
  1. ACTILYSE [Suspect]
     Active Substance: ALTEPLASE
     Indication: VENOUS THROMBOSIS
  2. CEFTRIAXONE. [Concomitant]
     Active Substance: CEFTRIAXONE
     Route: 065
  3. AMPICILLIN [Concomitant]
     Active Substance: AMPICILLIN
  4. WARFARIN [Concomitant]
     Active Substance: WARFARIN
  5. ACTILYSE [Suspect]
     Active Substance: ALTEPLASE
     Indication: CEREBROVASCULAR ACCIDENT
     Dosage: 10% BOLUS AND 90% IN 1 HOUR
     Route: 065

REACTIONS (5)
  - Pyrexia [Unknown]
  - Somnolence [Unknown]
  - Off label use [Unknown]
  - Musculoskeletal stiffness [Unknown]
  - Intentional product use issue [Unknown]

NARRATIVE: CASE EVENT DATE: 20170502
